FAERS Safety Report 13998376 (Version 1)
Quarter: 2017Q3

REPORT INFORMATION
  Report Type: Spontaneous
  Country: CA (occurrence: CA)
  Receive Date: 20170921
  Receipt Date: 20170921
  Transmission Date: 20171128
  Serious: Yes (Other)
  Sender: FDA-Public Use
  Company Number: CA-GLAXOSMITHKLINE-A1084928A

PATIENT
  Age: 40 Year
  Sex: Female
  Weight: 70.2 kg

DRUGS (15)
  1. ACETAMINOPHEN. [Concomitant]
     Active Substance: ACETAMINOPHEN
     Indication: PRODUCT USED FOR UNKNOWN INDICATION
  2. BENLYSTA [Suspect]
     Active Substance: BELIMUMAB
     Dosage: 640 MG, 4 WEEKS
     Route: 042
  3. BENLYSTA [Suspect]
     Active Substance: BELIMUMAB
     Dosage: 640 MG, 4 WEEKS
     Route: 042
  4. BENLYSTA [Suspect]
     Active Substance: BELIMUMAB
     Dosage: 640 MG, EVERY 5 WEEKS
  5. HYDROXYZINE [Concomitant]
     Active Substance: HYDROXYZINE HYDROCHLORIDE
     Indication: PRODUCT USED FOR UNKNOWN INDICATION
  6. BENLYSTA [Suspect]
     Active Substance: BELIMUMAB
     Indication: SYSTEMIC LUPUS ERYTHEMATOSUS
     Dosage: AT WEEK 0, 2. 4 THEN EVERY 4 WEEKS
     Route: 042
     Dates: start: 20140813
  7. BENLYSTA [Suspect]
     Active Substance: BELIMUMAB
     Dosage: UNK
     Route: 042
     Dates: start: 20140813
  8. BENLYSTA [Suspect]
     Active Substance: BELIMUMAB
     Dosage: 640 MG, 4 WEEKS
     Route: 042
  9. PREDNISONE. [Concomitant]
     Active Substance: PREDNISONE
     Indication: PRODUCT USED FOR UNKNOWN INDICATION
     Dosage: 5 MG, UNK
     Route: 048
  10. AMLODIPINE [Concomitant]
     Active Substance: AMLODIPINE BESYLATE
     Indication: PRODUCT USED FOR UNKNOWN INDICATION
  11. BENLYSTA [Suspect]
     Active Substance: BELIMUMAB
     Dosage: UNK, 640 MG, 4 WEEKS
     Route: 042
  12. GRAVOL [Concomitant]
     Active Substance: DIMENHYDRINATE
     Indication: PRODUCT USED FOR UNKNOWN INDICATION
  13. DIMENHYDRINAT [Concomitant]
     Active Substance: DIMENHYDRINATE
     Dosage: 50 MG, UNK
     Route: 042
  14. RAMIPRIL. [Concomitant]
     Active Substance: RAMIPRIL
     Indication: PRODUCT USED FOR UNKNOWN INDICATION
  15. HYDROXYCHLOROQUINE [Concomitant]
     Active Substance: HYDROXYCHLOROQUINE
     Indication: PRODUCT USED FOR UNKNOWN INDICATION

REACTIONS (14)
  - Malaise [Unknown]
  - Sinusitis [Recovering/Resolving]
  - Immunodeficiency [Unknown]
  - Pyrexia [Recovered/Resolved]
  - Off label use [Unknown]
  - Peripheral swelling [Recovered/Resolved]
  - Rash generalised [Recovered/Resolved]
  - Ill-defined disorder [Recovering/Resolving]
  - Nausea [Recovered/Resolved]
  - Chills [Recovered/Resolved]
  - Pruritus [Recovered/Resolved]
  - Aggression [Unknown]
  - Rhinorrhoea [Unknown]
  - Sinus congestion [Recovering/Resolving]

NARRATIVE: CASE EVENT DATE: 20140813
